FAERS Safety Report 7806740-6 (Version None)
Quarter: 2011Q4

REPORT INFORMATION
  Report Type: 
  Country: None (occurrence: None)
  Receive Date: 20111011
  Receipt Date: 20111004
  Transmission Date: 20120403
  Serious: Yes (Other)
  Sender: FDA-Public Use
  Company Number: FR-JNJFOC-20090406200

PATIENT

DRUGS (6)
  1. DEXAMETHASONE [Suspect]
     Indication: ACUTE LYMPHOCYTIC LEUKAEMIA
     Dosage: ADMINISTERED ON DAYS 1-4, 9-12 AND 17-20.
     Route: 048
  2. VINCRISTINE [Suspect]
     Indication: ACUTE LYMPHOCYTIC LEUKAEMIA
     Dosage: INDUCTION PHASE: INFUSED OVER 5 MINS ON DAY 1
     Route: 042
  3. DOXORUBICIN HCL [Suspect]
     Dosage: INDUCTION PHASE: INFUSED OVER 1 HOUR ON DAY 1
     Route: 042
  4. VINCRISTINE [Suspect]
     Dosage: CONSOLIDATION PHASE: ADMINISTERED ON DAYS 1, 8 AND 15
     Route: 042
  5. DOXORUBICIN HCL [Suspect]
     Indication: ACUTE LYMPHOCYTIC LEUKAEMIA
     Dosage: CONSOLIDATION PHASE: OVER 1 HOUR ON DAY 1
     Route: 042
  6. CYCLOSPORINE [Suspect]
     Indication: ACUTE LYMPHOCYTIC LEUKAEMIA
     Route: 065

REACTIONS (1)
  - BACTERAEMIA [None]
